FAERS Safety Report 12039638 (Version 1)
Quarter: 2016Q1

REPORT INFORMATION
  Report Type: Report from Study
  Country: GB (occurrence: GB)
  Receive Date: 20160208
  Receipt Date: 20160208
  Transmission Date: 20160526
  Serious: Yes (Death, Hospitalization)
  Sender: FDA-Public Use
  Company Number: PHHO2016GB001855

PATIENT
  Sex: Male
  Weight: 81 kg

DRUGS (2)
  1. ZOLEDRONATE [Suspect]
     Active Substance: ZOLEDRONIC ACID
     Indication: METASTASES TO BONE
     Route: 042
  2. ZOLADEX [Concomitant]
     Active Substance: GOSERELIN ACETATE
     Indication: PRODUCT USED FOR UNKNOWN INDICATION
     Dosage: 3.6 MG, UNK
     Route: 058
     Dates: start: 20101229, end: 20121229

REACTIONS (2)
  - Multiple organ dysfunction syndrome [Fatal]
  - Pneumonia [Fatal]

NARRATIVE: CASE EVENT DATE: 20110228
